FAERS Safety Report 13879737 (Version 3)
Quarter: 2017Q3

REPORT INFORMATION
  Report Type: Spontaneous
  Country: US (occurrence: US)
  Receive Date: 20170818
  Receipt Date: 20170826
  Transmission Date: 20171127
  Serious: Yes (Hospitalization, Other)
  Sender: FDA-Public Use
  Company Number: US-ABBVIE-17K-163-2071909-00

PATIENT
  Age: 55 Year
  Sex: Female
  Weight: 72.64 kg

DRUGS (4)
  1. HUMIRA [Suspect]
     Active Substance: ADALIMUMAB
     Route: 058
     Dates: start: 2017, end: 2017
  2. ENTYVIO [Suspect]
     Active Substance: VEDOLIZUMAB
     Indication: PRODUCT USED FOR UNKNOWN INDICATION
     Route: 065
     Dates: start: 2017, end: 2017
  3. HUMIRA [Suspect]
     Active Substance: ADALIMUMAB
     Indication: CROHN^S DISEASE
     Route: 058
     Dates: start: 2017, end: 2017
  4. PENTASA [Suspect]
     Active Substance: MESALAMINE
     Indication: CROHN^S DISEASE
     Route: 065
     Dates: start: 2017, end: 2017

REACTIONS (16)
  - Drug ineffective [Unknown]
  - Rash macular [Recovered/Resolved]
  - Skin disorder [Recovering/Resolving]
  - Skin exfoliation [Recovering/Resolving]
  - Pyrexia [Unknown]
  - Blister [Recovered/Resolved]
  - Alopecia [Unknown]
  - Rash macular [Recovering/Resolving]
  - Drug hypersensitivity [Unknown]
  - Pain [Not Recovered/Not Resolved]
  - Skin exfoliation [Recovered/Resolved]
  - Thyroid cancer metastatic [Recovered/Resolved]
  - Diarrhoea [Not Recovered/Not Resolved]
  - Skin disorder [Recovered/Resolved]
  - Feeling abnormal [Not Recovered/Not Resolved]
  - Blister [Recovering/Resolving]

NARRATIVE: CASE EVENT DATE: 2017
